FAERS Safety Report 16311457 (Version 1)
Quarter: 2019Q2

REPORT INFORMATION
  Report Type: Report from Study
  Country: US (occurrence: US)
  Receive Date: 20190514
  Receipt Date: 20190514
  Transmission Date: 20190711
  Serious: Yes (Life-Threatening, Other)
  Sender: FDA-Public Use
  Company Number: US-PFIZER INC-2019202752

PATIENT
  Age: 17 Year
  Sex: Female

DRUGS (6)
  1. VINCRISTINE SULFATE. [Suspect]
     Active Substance: VINCRISTINE SULFATE
     Indication: PRECURSOR B-LYMPHOBLASTIC LYMPHOMA
     Dosage: 1.5 MG/M2, WEEKLY (IV WEEKLY X 4, ACCORDING TO COGAALL0232 PROTOCOL WITH RANDOMIZATION INTO REGIMEN)
     Route: 042
  2. VINCRISTINE SULFATE. [Suspect]
     Active Substance: VINCRISTINE SULFATE
     Dosage: UNK, CYCLIC (MAINTENANCE VINCRISTINE)
  3. VINCRISTINE SULFATE. [Suspect]
     Active Substance: VINCRISTINE SULFATE
     Dosage: UNK, MONTHLY
  4. VINCRISTINE SULFATE. [Suspect]
     Active Substance: VINCRISTINE SULFATE
     Dosage: UNK, CYCLIC (GRADUALLY INCREASED TO FULL-DOSE)
  5. VINCRISTINE SULFATE. [Suspect]
     Active Substance: VINCRISTINE SULFATE
     Dosage: TWO HALF-DOSES OF VINCRISTINE DURING CONSOLIDATION, CYCLIC
  6. VINCRISTINE SULFATE. [Suspect]
     Active Substance: VINCRISTINE SULFATE
     Dosage: UNK, CYCLIC (RESTARTED ON HALF-DOSE VINCRISTINE)

REACTIONS (5)
  - Vocal cord paralysis [Recovered/Resolved]
  - Neurotoxicity [Recovered/Resolved]
  - Tumour lysis syndrome [Recovered/Resolved]
  - Respiratory failure [Recovered/Resolved]
  - Vocal cord paresis [Recovered/Resolved]
